FAERS Safety Report 18161633 (Version 1)
Quarter: 2020Q3

REPORT INFORMATION
  Report Type: Spontaneous
  Country: US (occurrence: US)
  Receive Date: 20200818
  Receipt Date: 20200818
  Transmission Date: 20201103
  Serious: Yes (Other)
  Sender: FDA-Public Use
  Company Number: US-DRREDDYS-USA/USA/20/0125998

PATIENT
  Age: 17 Year
  Sex: Male

DRUGS (5)
  1. ZENATANE [Suspect]
     Active Substance: ISOTRETINOIN
     Route: 048
  2. CLARAVIS [Concomitant]
     Active Substance: ISOTRETINOIN
  3. CLARAVIS [Concomitant]
     Active Substance: ISOTRETINOIN
     Indication: PRODUCT USED FOR UNKNOWN INDICATION
  4. ZENATANE [Suspect]
     Active Substance: ISOTRETINOIN
     Indication: PRODUCT USED FOR UNKNOWN INDICATION
     Route: 048
  5. ZENATANE [Suspect]
     Active Substance: ISOTRETINOIN
     Route: 048

REACTIONS (1)
  - Depression [Unknown]
